FAERS Safety Report 4352384-0 (Version None)
Quarter: 2004Q2

REPORT INFORMATION
  Report Type: 
  Country: None (occurrence: None)
  Receive Date: 20040423
  Receipt Date: 20031021
  Transmission Date: 20050107
  Serious: Yes (Hospitalization)
  Sender: FDA-Public Use
  Company Number: CIP03001914

PATIENT
  Age: 68 Year
  Sex: Female

DRUGS (7)
  1. MACROBID [Suspect]
     Indication: URINARY TRACT INFECTION
     Dosage: 100 MG TWICE DAILY, ORAL
     Route: 048
     Dates: start: 20030702, end: 20030705
  2. COUMADIN [Concomitant]
  3. LORAZEPAM [Concomitant]
  4. ACTONEL [Concomitant]
  5. CALCIUM W/MAGNESIUM [Concomitant]
  6. VITAMIN C AND E (TOCOPHEROL) [Concomitant]
  7. TYLENOL (CAPLET) [Concomitant]

REACTIONS (7)
  - ALANINE AMINOTRANSFERASE INCREASED [None]
  - ASPARTATE AMINOTRANSFERASE INCREASED [None]
  - BLOOD ALKALINE PHOSPHATASE INCREASED [None]
  - HEPATITIS [None]
  - JAUNDICE [None]
  - MALAISE [None]
  - PYREXIA [None]
